FAERS Safety Report 5002714-1 (Version None)
Quarter: 2006Q2

REPORT INFORMATION
  Report Type: 
  Country: None (occurrence: None)
  Receive Date: 20060516
  Receipt Date: 20060505
  Transmission Date: 20061013
  Serious: Yes (Other)
  Sender: FDA-Public Use
  Company Number: PHEH2006US05969

PATIENT
  Sex: Female

DRUGS (1)
  1. LAMISIL [Suspect]
     Dosage: 500 MG, QD
     Route: 048
     Dates: start: 20060501

REACTIONS (2)
  - DYSPNOEA [None]
  - HEART RATE INCREASED [None]
